FAERS Safety Report 20629068 (Version 1)
Quarter: 2022Q1

REPORT INFORMATION
  Report Type: Other
  Country: SE (occurrence: None)
  Receive Date: 20220323
  Receipt Date: 20220323
  Transmission Date: 20220423
  Serious: Yes (Hospitalization, Other)
  Sender: FDA-Public Use
  Company Number: SE-DEXPHARM-20220401

PATIENT
  Age: 53 Year
  Sex: Male

DRUGS (7)
  1. DICLOFENAC [Suspect]
     Active Substance: DICLOFENAC
     Dosage: TOPICAL DICLOFENAC 1 MG/ML EYE DROPS THREE TIMES PER DAY
  2. CHLORAMPHENICOL [Concomitant]
     Active Substance: CHLORAMPHENICOL
  3. LEVOFLOXACIN [Concomitant]
     Active Substance: LEVOFLOXACIN
  4. DEXAMETHASONE [Concomitant]
     Active Substance: DEXAMETHASONE
  5. CYCLOSPORINE [Concomitant]
     Active Substance: CYCLOSPORINE
  6. CEFUROXIME [Concomitant]
     Active Substance: CEFUROXIME
  7. ATROPINE [Concomitant]
     Active Substance: ATROPINE

REACTIONS (1)
  - Ulcerative keratitis [Recovered/Resolved]
